FAERS Safety Report 10197270 (Version 1)
Quarter: 2014Q2

REPORT INFORMATION
  Report Type: Spontaneous
  Country: US (occurrence: None)
  Receive Date: 20140523
  Receipt Date: 20140523
  Transmission Date: 20141212
  Serious: Yes (Disabling, Other)
  Sender: FDA-Public Use
  Company Number: None

PATIENT
  Age: 67 Year
  Sex: Female
  Weight: 72.58 kg

DRUGS (1)
  1. NORVASC [Suspect]
     Indication: HYPERTENSION
     Dosage: ONE A DAY, ONCE DAILY, TAKEN BY MOUTH
     Route: 048

REACTIONS (7)
  - Alopecia [None]
  - Peripheral swelling [None]
  - Peripheral swelling [None]
  - Chest discomfort [None]
  - Chest pain [None]
  - Headache [None]
  - Pain [None]
